FAERS Safety Report 17515447 (Version 1)
Quarter: 2020Q1

REPORT INFORMATION
  Report Type: Spontaneous
  Country: US (occurrence: US)
  Receive Date: 20200309
  Receipt Date: 20200309
  Transmission Date: 20200409
  Serious: Yes (Hospitalization)
  Sender: FDA-Public Use
  Company Number: US-ELI_LILLY_AND_COMPANY-US202002014121

PATIENT
  Sex: Female

DRUGS (3)
  1. INVOKANA [Concomitant]
     Active Substance: CANAGLIFLOZIN
     Indication: FLUID RETENTION
  2. LANTUS [Concomitant]
     Active Substance: INSULIN GLARGINE
     Indication: PRODUCT USED FOR UNKNOWN INDICATION
     Dosage: UNK, BID
  3. INSULIN LISPRO [Suspect]
     Active Substance: INSULIN LISPRO
     Indication: TYPE 2 DIABETES MELLITUS
     Dosage: 30 U, TID (SLIDING SCALE)
     Route: 065

REACTIONS (8)
  - Lymphoedema [Unknown]
  - Inflammation [Unknown]
  - Disturbance in attention [Unknown]
  - Asthma [Unknown]
  - Sepsis [Unknown]
  - Diplopia [Unknown]
  - Cataract [Unknown]
  - Erythema [Unknown]

NARRATIVE: CASE EVENT DATE: 2013
